FAERS Safety Report 22296622 (Version 3)
Quarter: 2023Q2

REPORT INFORMATION
  Report Type: Spontaneous
  Country: GB (occurrence: GB)
  Receive Date: 20230508
  Receipt Date: 20230621
  Transmission Date: 20230721
  Serious: Yes (Other)
  Sender: FDA-Public Use
  Company Number: GB-BIOGEN-2023BI01201258

PATIENT
  Sex: Female

DRUGS (4)
  1. TYSABRI [Suspect]
     Active Substance: NATALIZUMAB
     Indication: Product used for unknown indication
     Route: 050
     Dates: start: 202101
  2. TYSABRI [Suspect]
     Active Substance: NATALIZUMAB
     Dosage: LATE 2021
     Route: 050
     Dates: start: 2021
  3. TYSABRI [Suspect]
     Active Substance: NATALIZUMAB
     Dosage: EARLY 2022
     Route: 050
     Dates: start: 2022
  4. TYSABRI [Suspect]
     Active Substance: NATALIZUMAB
     Route: 050

REACTIONS (10)
  - Hip fracture [Recovered/Resolved]
  - Musculoskeletal disorder [Unknown]
  - Mobility decreased [Unknown]
  - Gait disturbance [Unknown]
  - Feeling abnormal [Unknown]
  - Therapeutic product effect incomplete [Unknown]
  - Fall [Recovered/Resolved]
  - Hemiparesis [Unknown]
  - Asthenia [Unknown]
  - Depressed mood [Unknown]

NARRATIVE: CASE EVENT DATE: 20210101
